FAERS Safety Report 8984469 (Version 3)
Quarter: 2013Q1

REPORT INFORMATION
  Report Type: Report from Study
  Country: JP (occurrence: JP)
  Receive Date: 20121226
  Receipt Date: 20130306
  Transmission Date: 20140127
  Serious: Yes (Death)
  Sender: FDA-Public Use
  Company Number: JP-PFIZER INC-2012324970

PATIENT
  Age: 59 Year
  Sex: Female
  Weight: 41 kg

DRUGS (13)
  1. CRIZOTINIB [Suspect]
     Indication: NON-SMALL CELL LUNG CANCER
     Dosage: 250 MG, 2X/DAY
     Route: 048
     Dates: start: 20120720, end: 20121027
  2. EXCEGRAN [Concomitant]
     Dosage: 100 MG, 2X/DAY
     Route: 048
     Dates: start: 20111014
  3. TAKEPRON [Concomitant]
     Dosage: 15 MG, 1X/DAY
     Route: 048
     Dates: start: 20111018
  4. DECADRON [Concomitant]
     Dosage: 0.5 MG, 1X/DAY
     Route: 048
     Dates: start: 20120808
  5. MOBIC [Concomitant]
     Dosage: 10 MG, 1X/DAY
     Route: 048
     Dates: start: 20120929
  6. MAG-LAX [Concomitant]
     Dosage: 330 MG, 3X/DAY
     Route: 048
     Dates: start: 20121208
  7. FOSAMAC [Concomitant]
     Dosage: 35 MG, WEEKLY
     Route: 048
     Dates: start: 20120615
  8. MEDICON [Concomitant]
     Dosage: 15 MG, 3X/DAY
     Route: 048
     Dates: start: 20111019
  9. NEW LECICARBON [Concomitant]
     Dosage: UNK
     Route: 054
     Dates: start: 20120822
  10. BORRAZA-G [Concomitant]
     Dosage: 2.4 G, AS NEEDED
     Route: 061
     Dates: start: 20120918
  11. RHYTHMY [Concomitant]
     Dosage: 2 MG, 1X/DAY
     Route: 048
     Dates: start: 20120402
  12. MOHRUS [Concomitant]
     Dosage: 40 MG, 1X/DAY
     Route: 061
     Dates: start: 20120603
  13. UREA [Concomitant]
     Dosage: 25 G, UNK
     Route: 061
     Dates: start: 20121018

REACTIONS (1)
  - Interstitial lung disease [Fatal]
